FAERS Safety Report 14453929 (Version 1)
Quarter: 2018Q1

REPORT INFORMATION
  Report Type: Spontaneous
  Country: FR (occurrence: FR)
  Receive Date: 20180129
  Receipt Date: 20180129
  Transmission Date: 20180509
  Serious: Yes (Life-Threatening, Hospitalization)
  Sender: FDA-Public Use
  Company Number: FR-INDIVIOR LIMITED-INDV-108178-2018

PATIENT
  Age: 41 Year
  Sex: Male
  Weight: 68 kg

DRUGS (1)
  1. SUBUTEX [Suspect]
     Active Substance: BUPRENORPHINE HYDROCHLORIDE
     Indication: PRODUCT USED FOR UNKNOWN INDICATION
     Dosage: UNK
     Route: 040
     Dates: start: 201703, end: 201703

REACTIONS (6)
  - Venous thrombosis [Recovered/Resolved]
  - Lung infection [Recovered/Resolved]
  - Product use issue [Recovered/Resolved]
  - Arthritis bacterial [Recovered/Resolved]
  - Septic shock [Recovered/Resolved]
  - Endocarditis staphylococcal [Recovered/Resolved]

NARRATIVE: CASE EVENT DATE: 201703
